FAERS Safety Report 4291154-9 (Version None)
Quarter: 2004Q1

REPORT INFORMATION
  Report Type: 
  Country: None (occurrence: None)
  Receive Date: 20040211
  Receipt Date: 20040206
  Transmission Date: 20041129
  Serious: Yes (Hospitalization)
  Sender: FDA-Public Use
  Company Number: 200410282JP

PATIENT
  Age: 57 Year
  Sex: Male

DRUGS (2)
  1. ALLEGRA [Suspect]
     Route: 048
  2. PABRON [Concomitant]

REACTIONS (1)
  - STEVENS-JOHNSON SYNDROME [None]
